FAERS Safety Report 7367962-4 (Version None)
Quarter: 2011Q1

REPORT INFORMATION
  Report Type: 
  Country: None (occurrence: None)
  Receive Date: 20110322
  Receipt Date: 20110318
  Transmission Date: 20110831
  Serious: Yes (Death)
  Sender: FDA-Public Use
  Company Number: PHHY2011US15386

PATIENT
  Sex: Female
  Weight: 41.27 kg

DRUGS (4)
  1. EXELON [Suspect]
     Dosage: 9.5 MG, QD
  2. ATENOLOL [Concomitant]
     Dosage: UNK
  3. VALIUM [Concomitant]
     Indication: INSOMNIA
     Dosage: UNK
  4. LANOXIN [Concomitant]
     Dosage: UNK UKN, UNK

REACTIONS (1)
  - PNEUMONIA [None]
